FAERS Safety Report 6250274-X (Version None)
Quarter: 2009Q2

REPORT INFORMATION
  Report Type: 
  Country: None (occurrence: None)
  Receive Date: 20090626
  Receipt Date: 20090626
  Transmission Date: 20091009
  Serious: No
  Sender: FDA-Public Use
  Company Number: None

PATIENT
  Age: 33 Year
  Sex: Male
  Weight: 68.0396 kg

DRUGS (3)
  1. PHENERGAN [Suspect]
     Indication: NAUSEA
     Dosage: 25 MG Q6 PRN IV
     Route: 042
     Dates: start: 20090428
  2. PHENERGAN [Suspect]
     Indication: PAIN
     Dosage: 25 MG Q6 PRN IV
     Route: 042
     Dates: start: 20090428
  3. DILAUDID [Concomitant]

REACTIONS (3)
  - NAUSEA [None]
  - PRURITUS [None]
  - VOMITING [None]
